FAERS Safety Report 8604275-4 (Version None)
Quarter: 2012Q3

REPORT INFORMATION
  Report Type: 
  Country: None (occurrence: None)
  Receive Date: 20120820
  Receipt Date: 20120815
  Transmission Date: 20120928
  Serious: Yes (Hospitalization, Other)
  Sender: FDA-Public Use
  Company Number: US-BAYER-2012-068070

PATIENT
  Age: 44 Year
  Sex: Male

DRUGS (4)
  1. KOGENATE FS [Suspect]
     Indication: HAEMARTHROSIS
     Dosage: 4260 U (AT LEAST 1-2 TIMES PER MONTH)
     Dates: start: 20120806
  2. RECOMBINATE [Concomitant]
     Indication: HAEMARTHROSIS
     Dosage: 1 TO 2 TIMES/MONTH
  3. KOGENATE FS [Suspect]
     Indication: HAEMORRHAGE PROPHYLAXIS
  4. RECOMBINATE [Concomitant]
     Indication: HAEMORRHAGE PROPHYLAXIS

REACTIONS (3)
  - ANTI FACTOR VIII ANTIBODY POSITIVE [None]
  - INCORRECT DOSE ADMINISTERED [None]
  - MELAENA [None]
